FAERS Safety Report 7124569-1 (Version None)
Quarter: 2010Q4

REPORT INFORMATION
  Report Type: 
  Country: None (occurrence: None)
  Receive Date: 20101129
  Receipt Date: 20101115
  Transmission Date: 20110411
  Serious: Yes (Hospitalization)
  Sender: FDA-Public Use
  Company Number: DE-BIOGENIDEC-2010BI033643

PATIENT
  Age: 43 Year
  Sex: Female
  Weight: 66 kg

DRUGS (4)
  1. AVONEX [Suspect]
     Indication: RELAPSING-REMITTING MULTIPLE SCLEROSIS
     Route: 030
     Dates: start: 20020701, end: 20080101
  2. VALPROIC ACID [Concomitant]
     Indication: EPILEPSY
  3. VALPROIC ACID [Concomitant]
  4. TRILEPTAL [Concomitant]
     Indication: EPILEPSY

REACTIONS (3)
  - CEREBRAL VENOUS THROMBOSIS [None]
  - EPILEPSY [None]
  - TREMOR [None]
